FAERS Safety Report 8622137-3 (Version None)
Quarter: 2012Q3

REPORT INFORMATION
  Report Type: 
  Country: None (occurrence: None)
  Receive Date: 20120826
  Receipt Date: 20120716
  Transmission Date: 20120928
  Serious: No
  Sender: FDA-Public Use
  Company Number: US-009507513-1207USA005441

PATIENT

DRUGS (1)
  1. PROVENTIL [Suspect]

REACTIONS (4)
  - DEVICE MALFUNCTION [None]
  - FACE INJURY [None]
  - THERMAL BURN [None]
  - CHEST INJURY [None]
